FAERS Safety Report 15809749 (Version 1)
Quarter: 2019Q1

REPORT INFORMATION
  Report Type: Spontaneous
  Country: US (occurrence: US)
  Receive Date: 20190111
  Receipt Date: 20190111
  Transmission Date: 20190417
  Serious: No
  Sender: FDA-Public Use
  Company Number: US-ROCHE-2072466

PATIENT
  Age: 47 Year
  Sex: Female

DRUGS (4)
  1. PREDNISONE. [Concomitant]
     Active Substance: PREDNISONE
     Indication: RHEUMATOID ARTHRITIS
     Dosage: DAILY; ONGOING: YES
     Route: 048
     Dates: start: 20171106
  2. DIPHENHYDRAMINE. [Concomitant]
     Active Substance: DIPHENHYDRAMINE
     Dosage: PRIOR TO RITUXAN INFUSION
     Route: 048
     Dates: start: 20180208, end: 20180208
  3. RITUXAN [Suspect]
     Active Substance: RITUXIMAB
     Indication: RHEUMATOID ARTHRITIS
     Dosage: ON DAY 1 AND DAY 15 THEN EVERY 6 MONTHS
     Route: 042
     Dates: start: 20180208
  4. ACETAMINOPHEN. [Concomitant]
     Active Substance: ACETAMINOPHEN
     Dosage: PRIOR TO RITUXAN INFUSION
     Route: 048
     Dates: start: 20180208, end: 20180208

REACTIONS (5)
  - Fatigue [Not Recovered/Not Resolved]
  - Pruritus [Recovered/Resolved]
  - Dehydration [Unknown]
  - Throat irritation [Recovered/Resolved]
  - Dry mouth [Not Recovered/Not Resolved]

NARRATIVE: CASE EVENT DATE: 20180208
